FAERS Safety Report 12161036 (Version 2)
Quarter: 2016Q2

REPORT INFORMATION
  Report Type: Spontaneous
  Country: US (occurrence: US)
  Receive Date: 20160308
  Receipt Date: 20160628
  Transmission Date: 20160815
  Serious: Yes (Hospitalization, Disabling)
  Sender: FDA-Public Use
  Company Number: US-ENDO PHARMACEUTICALS INC.-2016-001629

PATIENT
  Age: 44 Year
  Sex: Male
  Weight: 130.3 kg

DRUGS (4)
  1. TESTIM [Suspect]
     Active Substance: TESTOSTERONE
     Indication: ANDROGEN REPLACEMENT THERAPY
     Route: 062
     Dates: start: 20130827, end: 20131003
  2. METFORMIN [Concomitant]
     Active Substance: METFORMIN HYDROCHLORIDE
     Indication: PRODUCT USED FOR UNKNOWN INDICATION
     Route: 065
  3. LISINOPRIL. [Concomitant]
     Active Substance: LISINOPRIL
     Indication: PRODUCT USED FOR UNKNOWN INDICATION
     Route: 065
  4. AMOXICILLIN. [Concomitant]
     Active Substance: AMOXICILLIN
     Indication: PRODUCT USED FOR UNKNOWN INDICATION
     Route: 065

REACTIONS (5)
  - Diabetes mellitus inadequate control [Unknown]
  - Renal disorder [Recovered/Resolved]
  - Acute myocardial infarction [Not Recovered/Not Resolved]
  - Hyperosmolar hyperglycaemic state [Recovered/Resolved]
  - Angina pectoris [Unknown]

NARRATIVE: CASE EVENT DATE: 20131003
